FAERS Safety Report 19889240 (Version 1)
Quarter: 2021Q3

REPORT INFORMATION
  Report Type: Spontaneous
  Country: US (occurrence: US)
  Receive Date: 20210927
  Receipt Date: 20210927
  Transmission Date: 20211014
  Serious: Yes (Hospitalization)
  Sender: FDA-Public Use
  Company Number: None

PATIENT
  Age: 39 Year
  Sex: Female
  Weight: 83.9 kg

DRUGS (10)
  1. ONDANSETRON 4 MG Q 6 HOURS PRN [Concomitant]
  2. FLUONETINE 40 MG QD [Concomitant]
  3. BUDESONIDE. [Suspect]
     Active Substance: BUDESONIDE
  4. MESALAMINE 500 MG CR ? 2 CAPSULES QD [Concomitant]
  5. BUDESONIDE 3 MG ? 2 CAPSULES QD [Concomitant]
  6. PANTOPRAZOLE 40 MG QD [Concomitant]
  7. INFLECTRA 800 MG Q 8 WEEKS (LAST DOSE REPORTED ON 07NOV2019) [Concomitant]
     Dates: end: 20191107
  8. ABUTEROL 90 MCG/ACTUATION HFA INHALER ? 2 PUFFS QD [Concomitant]
  9. CETIRIZINE 10 MG QD [Concomitant]
  10. MERCAPTOPURINE 50 MG QD [Concomitant]

REACTIONS (9)
  - Secretion discharge [None]
  - Abdominal pain [None]
  - Vomiting [None]
  - Abdominal rigidity [None]
  - Flatulence [None]
  - Anal fistula [None]
  - Nausea [None]
  - Gastric mucosa erythema [None]
  - Intra-abdominal fluid collection [None]

NARRATIVE: CASE EVENT DATE: 20191120
